FAERS Safety Report 5071190-5 (Version None)
Quarter: 2006Q3

REPORT INFORMATION
  Report Type: 
  Country: None (occurrence: None)
  Receive Date: 20060714
  Receipt Date: 20060425
  Transmission Date: 20061208
  Serious: No
  Sender: FDA-Public Use
  Company Number: 2006SP001833

PATIENT
  Age: 55 Year
  Sex: Female
  Weight: 48.5349 kg

DRUGS (2)
  1. LUNESTA [Suspect]
     Indication: INITIAL INSOMNIA
     Dosage: 2 MG;PRN;ORAL
     Route: 048
     Dates: start: 20060301
  2. THYROID THERAPY [Concomitant]

REACTIONS (1)
  - DYSGEUSIA [None]
